FAERS Safety Report 17424456 (Version 1)
Quarter: 2020Q1

REPORT INFORMATION
  Report Type: Spontaneous
  Country: US (occurrence: US)
  Receive Date: 20200217
  Receipt Date: 20200217
  Transmission Date: 20200409
  Serious: Yes (Other)
  Sender: FDA-Public Use
  Company Number: US-PROCTER_AND_GAMBLE-GS20015262

PATIENT

DRUGS (1)
  1. OLD SPICE AP NOS [Suspect]
     Active Substance: ALUMINUM CHLOROHYDRATE OR ALUMINUM ZIRCONIUM OCTACHLOROHYDREX GLY OR ALUMINUM ZIRCONIUM TETRACHLOROHYDREX GLY OR ALUMINUM ZIRCONIUM TRICHLOROHYDREX GLY OR PYRITHIONE ZINC
     Dosage: UNK
     Route: 061

REACTIONS (1)
  - Arm amputation [Unknown]
